FAERS Safety Report 5904076-1 (Version None)
Quarter: 2008Q3

REPORT INFORMATION
  Report Type: 
  Country: None (occurrence: None)
  Receive Date: 20080919
  Receipt Date: 20080801
  Transmission Date: 20090109
  Serious: No
  Sender: FDA-Public Use
  Company Number: US-WYE-H05360908

PATIENT
  Age: 43 Year
  Sex: Female
  Weight: 68.1 kg

DRUGS (6)
  1. PRISTIQ [Suspect]
     Indication: DEPRESSION
     Dosage: 50 MG 1X PER 1 DAY : 50 MG 1X PER 2 DAY : 50 MG 1X PER 1 DAY : 100 MG 1X PER 1 DAY, ORAL
     Route: 048
     Dates: start: 20080701, end: 20080701
  2. PRISTIQ [Suspect]
     Indication: DEPRESSION
     Dosage: 50 MG 1X PER 1 DAY : 50 MG 1X PER 2 DAY : 50 MG 1X PER 1 DAY : 100 MG 1X PER 1 DAY, ORAL
     Route: 048
     Dates: start: 20080727, end: 20080701
  3. PRISTIQ [Suspect]
     Indication: DEPRESSION
     Dosage: 50 MG 1X PER 1 DAY : 50 MG 1X PER 2 DAY : 50 MG 1X PER 1 DAY : 100 MG 1X PER 1 DAY, ORAL
     Route: 048
     Dates: start: 20080601, end: 20080716
  4. PRISTIQ [Suspect]
     Indication: DEPRESSION
     Dosage: 50 MG 1X PER 1 DAY : 50 MG 1X PER 2 DAY : 50 MG 1X PER 1 DAY : 100 MG 1X PER 1 DAY, ORAL
     Route: 048
     Dates: start: 20080717, end: 20080726
  5. RESTORIL [Concomitant]
  6. NEURONTIN [Concomitant]

REACTIONS (1)
  - HYPERHIDROSIS [None]
